FAERS Safety Report 9337460 (Version 1)
Quarter: 2013Q2

REPORT INFORMATION
  Report Type: Spontaneous
  Country: US (occurrence: US)
  Receive Date: 20130607
  Receipt Date: 20130607
  Transmission Date: 20140414
  Serious: No
  Sender: FDA-Public Use
  Company Number: US-009507513-1306USA001477

PATIENT
  Sex: Male

DRUGS (1)
  1. MIRALAX [Suspect]
     Indication: CONSTIPATION
     Dosage: 8.5 G, QD
     Route: 048

REACTIONS (5)
  - Flatulence [Unknown]
  - Gastric disorder [Unknown]
  - Incorrect drug administration duration [Unknown]
  - Drug effect delayed [Unknown]
  - Underdose [Unknown]
